FAERS Safety Report 4377889-8 (Version None)
Quarter: 2004Q2

REPORT INFORMATION
  Report Type: 
  Country: None (occurrence: None)
  Receive Date: 20040601
  Receipt Date: 20040206
  Transmission Date: 20050107
  Serious: No
  Sender: FDA-Public Use
  Company Number: WAES 0402USA00633

PATIENT
  Age: 60 Year
  Sex: Female

DRUGS (4)
  1. ZETIA [Suspect]
     Indication: BLOOD CHOLESTEROL INCREASED
     Dosage: 10 MG, DAILY, PO
     Route: 048
     Dates: start: 20031206, end: 20040116
  2. EVISTA [Concomitant]
  3. UNITHROID [Concomitant]
  4. LIPITOR [Suspect]
     Dates: start: 20031206, end: 20040116

REACTIONS (2)
  - ERUCTATION [None]
  - SENSATION OF FOREIGN BODY [None]
